FAERS Safety Report 14401134 (Version 1)
Quarter: 2018Q1

REPORT INFORMATION
  Report Type: Spontaneous
  Country: US (occurrence: US)
  Receive Date: 20180117
  Receipt Date: 20180117
  Transmission Date: 20180509
  Serious: No
  Sender: FDA-Public Use
  Company Number: US-PFIZER INC-2018018178

PATIENT
  Age: 71 Year
  Sex: Male
  Weight: 87.54 kg

DRUGS (2)
  1. WARFARIN [Concomitant]
     Active Substance: WARFARIN
     Dosage: 5 MG, 1X/DAY(5 MG, ONCE EVERYDAY AT NIGHT)
     Route: 048
  2. TIKOSYN [Suspect]
     Active Substance: DOFETILIDE
     Indication: ATRIAL FIBRILLATION
     Dosage: 0.125 MG, 2X/DAY(0.125 MG, CAPSULE, 2 TIMES A DAY, ONCE IN THE MORNING AND ONCE AT NIGHT)
     Route: 048

REACTIONS (3)
  - Blood urea increased [Unknown]
  - Renal disorder [Unknown]
  - Laboratory test abnormal [Unknown]
